FAERS Safety Report 8609222-7 (Version None)
Quarter: 2012Q3

REPORT INFORMATION
  Report Type: 
  Country: None (occurrence: None)
  Receive Date: 20120821
  Receipt Date: 20120808
  Transmission Date: 20120928
  Serious: No
  Sender: FDA-Public Use
  Company Number: US-ASTRAZENECA-2012SE56272

PATIENT
  Age: 34 Year
  Sex: Female

DRUGS (4)
  1. CYMBALTA [Concomitant]
  2. ATWAN [Concomitant]
  3. SEROQUEL [Suspect]
     Dosage: 100MG IN THE MORNING AND 300MG AT BED TIME
     Route: 048
  4. PROTONIX [Concomitant]

REACTIONS (1)
  - MATERNAL EXPOSURE DURING PREGNANCY [None]
